FAERS Safety Report 12508409 (Version 1)
Quarter: 2016Q2

REPORT INFORMATION
  Report Type: Spontaneous
  Country: FR (occurrence: FR)
  Receive Date: 20160629
  Receipt Date: 20160629
  Transmission Date: 20160815
  Serious: Yes (Hospitalization)
  Sender: FDA-Public Use
  Company Number: FR-SA-2016SA117038

PATIENT
  Age: 67 Year
  Sex: Male

DRUGS (2)
  1. HUMIRA [Concomitant]
     Active Substance: ADALIMUMAB
     Dosage: Q2W?EVERY 2 WEEKS
     Route: 058
     Dates: start: 20130318
  2. RIFATER [Suspect]
     Active Substance: ISONIAZID\PYRAZINAMIDE\RIFAMPIN
     Indication: TUBERCULOSIS
     Route: 048
     Dates: start: 20160324, end: 20160503

REACTIONS (2)
  - Hyperthermia [Recovered/Resolved]
  - Hepatic enzyme increased [Recovered/Resolved]

NARRATIVE: CASE EVENT DATE: 20160503
